FAERS Safety Report 5005641-9 (Version None)
Quarter: 2006Q2

REPORT INFORMATION
  Report Type: 
  Country: None (occurrence: None)
  Receive Date: 20060515
  Receipt Date: 20060505
  Transmission Date: 20061013
  Serious: Yes (Hospitalization)
  Sender: FDA-Public Use
  Company Number: 2006-05-0380

PATIENT
  Sex: Male

DRUGS (2)
  1. TEMODAL [Suspect]
     Dosage: ORAL
     Route: 048
  2. RADIATION THERAPY [Suspect]
     Dosage: X-RAY THERAPY

REACTIONS (1)
  - HEPATITIS TOXIC [None]
